FAERS Safety Report 14311674 (Version 1)
Quarter: 2017Q4

REPORT INFORMATION
  Report Type: Spontaneous
  Country: US (occurrence: US)
  Receive Date: 20171221
  Receipt Date: 20171221
  Transmission Date: 20180321
  Serious: Yes (Hospitalization)
  Sender: FDA-Public Use
  Company Number: US-BEH-2017086040

PATIENT
  Sex: Female
  Weight: 122.45 kg

DRUGS (26)
  1. LAMOTRIGINE. [Concomitant]
     Active Substance: LAMOTRIGINE
  2. MULTIVITAMIN AND MINERAL SUPPLEMENT [Concomitant]
     Active Substance: MINERALS\VITAMINS
  3. OMEGA 3 FISH OIL                   /01334101/ [Concomitant]
     Active Substance: FISH OIL
  4. LMX                                /00033401/ [Concomitant]
  5. CYMBALTA [Concomitant]
     Active Substance: DULOXETINE HYDROCHLORIDE
  6. DIPHENHYDRAMINE. [Concomitant]
     Active Substance: DIPHENHYDRAMINE
  7. LIDOCAINE. [Concomitant]
     Active Substance: LIDOCAINE
  8. SIMVASTATIN. [Concomitant]
     Active Substance: SIMVASTATIN
  9. HIZENTRA [Suspect]
     Active Substance: HUMAN IMMUNOGLOBULIN G
     Dosage: UNK
     Route: 058
  10. AZO CRANBERRY [Concomitant]
     Active Substance: DIETARY SUPPLEMENT
  11. ACARBOSE. [Concomitant]
     Active Substance: ACARBOSE
  12. NASONEX [Concomitant]
     Active Substance: MOMETASONE FUROATE
  13. HIZENTRA [Suspect]
     Active Substance: HUMAN IMMUNOGLOBULIN G
     Indication: IMMUNODEFICIENCY COMMON VARIABLE
     Dosage: 8 G, BIW
     Route: 058
     Dates: start: 20140206
  14. OMEPRAZOLE. [Concomitant]
     Active Substance: OMEPRAZOLE
  15. OCTREOTIDE ACETATE. [Concomitant]
     Active Substance: OCTREOTIDE ACETATE
  16. SINGULAIR [Concomitant]
     Active Substance: MONTELUKAST SODIUM
  17. ZOFRAN [Concomitant]
     Active Substance: ONDANSETRON HYDROCHLORIDE
  18. CELEBREX [Concomitant]
     Active Substance: CELECOXIB
  19. NAPROXEN. [Concomitant]
     Active Substance: NAPROXEN
  20. EPINEPHRINE. [Concomitant]
     Active Substance: EPINEPHRINE
  21. BOTOX [Concomitant]
     Active Substance: ONABOTULINUMTOXINA
  22. GABAPENTIN. [Concomitant]
     Active Substance: GABAPENTIN
  23. SEROQUEL [Concomitant]
     Active Substance: QUETIAPINE FUMARATE
  24. VITAMIN D                          /00107901/ [Concomitant]
     Active Substance: ERGOCALCIFEROL
  25. VITAMIN B12 [Concomitant]
     Active Substance: CYANOCOBALAMIN
  26. VANIQA                             /00936001/ [Concomitant]

REACTIONS (1)
  - Renal failure [Unknown]
